FAERS Safety Report 9215541 (Version 1)
Quarter: 2013Q2

REPORT INFORMATION
  Report Type: Report from Study
  Country: US (occurrence: US)
  Receive Date: 20130407
  Receipt Date: 20130407
  Transmission Date: 20140414
  Serious: Yes (Other)
  Sender: FDA-Public Use
  Company Number: US-JNJFOC-20130204628

PATIENT
  Age: 72 Year
  Sex: Female
  Weight: 74.84 kg

DRUGS (15)
  1. XARELTO [Suspect]
     Indication: PULMONARY EMBOLISM
     Route: 048
     Dates: start: 20130201
  2. XARELTO [Suspect]
     Indication: PULMONARY EMBOLISM
     Route: 048
     Dates: start: 20130131
  3. XARELTO [Suspect]
     Indication: DEEP VEIN THROMBOSIS
     Route: 048
     Dates: start: 20130201
  4. XARELTO [Suspect]
     Indication: DEEP VEIN THROMBOSIS
     Route: 048
     Dates: start: 20130131
  5. XARELTO [Suspect]
     Indication: THROMBOSIS
     Route: 048
     Dates: start: 20130201
  6. XARELTO [Suspect]
     Indication: THROMBOSIS
     Route: 048
     Dates: start: 20130131
  7. VERAPAMIL [Concomitant]
     Indication: HYPERTENSION
     Route: 048
  8. HYDROCHLOROTHIAZIDE [Concomitant]
     Indication: HYPERTENSION
     Route: 048
  9. MULTIVITAMIN TABLET [Concomitant]
  10. FISH OIL [Concomitant]
  11. GLUCOSAMINE [Concomitant]
  12. CHONDROITIN [Concomitant]
  13. MELOXICAM [Concomitant]
     Dosage: TOOK FOR 3 WEEKS
  14. CALCIUM [Concomitant]
  15. VITAMIN D [Concomitant]

REACTIONS (4)
  - Deep vein thrombosis [Not Recovered/Not Resolved]
  - Inappropriate schedule of drug administration [Not Recovered/Not Resolved]
  - Chromaturia [Not Recovered/Not Resolved]
  - Haemorrhage [Unknown]
